FAERS Safety Report 7123854-7 (Version None)
Quarter: 2010Q4

REPORT INFORMATION
  Report Type: 
  Country: None (occurrence: None)
  Receive Date: 20101125
  Receipt Date: 20101118
  Transmission Date: 20110411
  Serious: Yes (Death, Hospitalization, Other)
  Sender: FDA-Public Use
  Company Number: PHHY2008US37148

PATIENT
  Sex: Female
  Weight: 58.05 kg

DRUGS (4)
  1. EXJADE [Suspect]
     Indication: IRON OVERLOAD
     Dosage: 500 MG, BID
     Dates: start: 20080201, end: 20080401
  2. ANALGESICS [Concomitant]
     Indication: PAIN
  3. ALDACTONE [Concomitant]
  4. MS CONTIN [Concomitant]

REACTIONS (8)
  - ABDOMINAL OPERATION [None]
  - ADHESION [None]
  - CARDIAC FAILURE [None]
  - CARDIAC VALVE VEGETATION [None]
  - GENERAL PHYSICAL HEALTH DETERIORATION [None]
  - HEART VALVE REPLACEMENT [None]
  - HERNIA REPAIR [None]
  - SMALL INTESTINAL OBSTRUCTION [None]
